FAERS Safety Report 8869196 (Version 1)
Quarter: 2012Q4

REPORT INFORMATION
  Report Type: 
  Country: US (occurrence: US)
  Receive Date: 20121023
  Receipt Date: 20121023
  Transmission Date: 20130627
  Serious: No
  Sender: FDA-Public Use
  Company Number: US-AMGEN-USASP2012054009

PATIENT
  Age: 65 Year
  Sex: Female

DRUGS (9)
  1. ENBREL [Suspect]
     Indication: PRODUCT USED FOR UNKNOWN INDICATION
     Dosage: 50 mg, qwk
     Route: 058
  2. METHOTREXATE [Concomitant]
     Dosage: 2.5 mg, UNK
  3. FOLIC ACID [Concomitant]
     Dosage: 1 mg, UNK
  4. CALCIUM CITRAMATE [Concomitant]
     Dosage: 200 mg, UNK
  5. VITAMIN D3 [Concomitant]
     Dosage: 2000 unit, UNK
  6. B COMPLEX                          /00212701/ [Concomitant]
     Dosage: UNK
  7. OMEGA 3                            /01334101/ [Concomitant]
     Dosage: 1000 mg, UNK
  8. MULTIVITAMINS [Concomitant]
     Dosage: UNK
  9. IRON [Concomitant]
     Dosage: UNK

REACTIONS (2)
  - Cough [Unknown]
  - Fatigue [Unknown]
